FAERS Safety Report 5420096-8 (Version None)
Quarter: 2007Q3

REPORT INFORMATION
  Report Type: 
  Country: None (occurrence: None)
  Receive Date: 20070815
  Receipt Date: 20070806
  Transmission Date: 20080115
  Serious: Yes (Disabling)
  Sender: FDA-Public Use
  Company Number: TCI2007A02782

PATIENT
  Age: 61 Year
  Sex: Male

DRUGS (8)
  1. ACTOS [Suspect]
     Indication: DIABETES MELLITUS
     Dosage: 15 MG (15 MG, 1 IN 1 D), PER ORAL
     Route: 048
     Dates: start: 20070116, end: 20070614
  2. BLOPRESS (CANDESARTAN CILEXETIL) [Concomitant]
  3. TAMSULOSIN HCL [Concomitant]
  4. PENTASA [Concomitant]
  5. FAMOTIDINE [Concomitant]
  6. KINEDAK (EPALRESTAT) [Concomitant]
  7. TICLOPIDINE HCL [Concomitant]
  8. TOLEDOMIN (MILNACIPRAN HYDROCHLORIDE) [Concomitant]

REACTIONS (5)
  - COLITIS ULCERATIVE [None]
  - DRUG INEFFECTIVE [None]
  - FLATULENCE [None]
  - IMPAIRED HEALING [None]
  - LIMB INJURY [None]
